FAERS Safety Report 7997981-6 (Version None)
Quarter: 2011Q4

REPORT INFORMATION
  Report Type: 
  Country: None (occurrence: None)
  Receive Date: 20111221
  Receipt Date: 20111216
  Transmission Date: 20120403
  Serious: Yes (Other)
  Sender: FDA-Public Use
  Company Number: PHEH2011US011894

PATIENT
  Sex: Female

DRUGS (4)
  1. ESTRADIOL [Suspect]
     Dosage: 0.1 MG, QW
  2. SYNTHROID [Concomitant]
  3. ALORA [Suspect]
     Dosage: 0.1 MG, QW2
  4. ESTRADERM [Suspect]
     Route: 062

REACTIONS (5)
  - DIARRHOEA [None]
  - DEHYDRATION [None]
  - DIZZINESS [None]
  - MALAISE [None]
  - VOMITING [None]
